FAERS Safety Report 6292130-7 (Version None)
Quarter: 2009Q3

REPORT INFORMATION
  Report Type: 
  Country: None (occurrence: None)
  Receive Date: 20090730
  Receipt Date: 20090730
  Transmission Date: 20100115
  Serious: No
  Sender: FDA-Public Use
  Company Number: None

PATIENT
  Age: 32 Year
  Sex: Female
  Weight: 72.5755 kg

DRUGS (2)
  1. FLUCONAZOLE [Suspect]
     Indication: PROPHYLAXIS
     Dosage: 150MG, AS NEEDED, PO
     Route: 048
     Dates: start: 20080815, end: 20090601
  2. FLUCONAZOLE [Suspect]
     Indication: VULVOVAGINAL MYCOTIC INFECTION
     Dosage: 150MG, AS NEEDED, PO
     Route: 048
     Dates: start: 20080815, end: 20090601

REACTIONS (2)
  - DRUG ERUPTION [None]
  - SKIN DISCOLOURATION [None]
